FAERS Safety Report 11197415 (Version 1)
Quarter: 2015Q2

REPORT INFORMATION
  Report Type: Spontaneous
  Country: ES (occurrence: ES)
  Receive Date: 20150617
  Receipt Date: 20150617
  Transmission Date: 20150821
  Serious: Yes (Hospitalization, Other)
  Sender: FDA-Public Use
  Company Number: ES-GILEAD-2015-0158714

PATIENT
  Age: 74 Year
  Sex: Male
  Weight: 76 kg

DRUGS (6)
  1. SOVALDI [Suspect]
     Active Substance: SOFOSBUVIR
     Indication: HEPATITIS C
     Dosage: 400 MG, QD
     Route: 048
     Dates: start: 20150508
  2. OLYSIO [Suspect]
     Active Substance: SIMEPREVIR
     Dosage: UNK UNKNOWN, UNK
     Route: 048
  3. RIBAVIRINA [Suspect]
     Active Substance: RIBAVIRIN
     Dosage: UNK UNKNOWN, UNK
     Route: 048
  4. OLYSIO [Suspect]
     Active Substance: SIMEPREVIR
     Indication: HEPATITIS C
     Dosage: 150 MG, QD
     Route: 048
     Dates: start: 20150508
  5. RIBAVIRINA [Suspect]
     Active Substance: RIBAVIRIN
     Indication: HEPATITIS C
     Dosage: 1200 MG, QD
     Route: 048
     Dates: start: 20150505
  6. SOVALDI [Suspect]
     Active Substance: SOFOSBUVIR
     Dosage: UNK UNKNOWN, UNK
     Route: 048

REACTIONS (3)
  - Anaemia [Recovering/Resolving]
  - Hyperbilirubinaemia [Recovering/Resolving]
  - Pneumonia [Recovering/Resolving]

NARRATIVE: CASE EVENT DATE: 20150522
